FAERS Safety Report 10180713 (Version 1)
Quarter: 2014Q2

REPORT INFORMATION
  Report Type: Spontaneous
  Country: US (occurrence: US)
  Receive Date: 20140519
  Receipt Date: 20140519
  Transmission Date: 20141212
  Serious: No
  Sender: FDA-Public Use
  Company Number: US-AMGEN INC.-USASP2014017200

PATIENT
  Sex: Female

DRUGS (2)
  1. PROLIA [Suspect]
     Indication: OSTEOPOROSIS POSTMENOPAUSAL
     Dosage: UNK
     Route: 065
  2. INFLUENZA VACCINE [Concomitant]

REACTIONS (3)
  - Dyspnoea [Recovering/Resolving]
  - Bone pain [Recovering/Resolving]
  - Arthralgia [Recovering/Resolving]
